FAERS Safety Report 8220995-8 (Version None)
Quarter: 2012Q1

REPORT INFORMATION
  Report Type: 
  Country: None (occurrence: None)
  Receive Date: 20120313
  Receipt Date: 20120305
  Transmission Date: 20120608
  Serious: Yes (Death, Other)
  Sender: FDA-Public Use
  Company Number: 2011SP050512

PATIENT
  Age: 69 Year
  Sex: Female

DRUGS (10)
  1. XANAX [Concomitant]
  2. ATARAX [Concomitant]
  3. PROCRIT [Concomitant]
  4. AMBIEN [Concomitant]
  5. RIBAVIRIN [Suspect]
     Indication: PRODUCT USED FOR UNKNOWN INDICATION
     Dosage: UNK
  6. VICTRELIS [Suspect]
     Indication: PRODUCT USED FOR UNKNOWN INDICATION
     Dosage: 200 MG, Q8H, PO
     Route: 048
     Dates: start: 20110801
  7. CALCIUM WITH VITAMIN D [Concomitant]
  8. PEG-INTRON [Suspect]
     Indication: PRODUCT USED FOR UNKNOWN INDICATION
     Dosage: UNK
  9. METFORMIN HCL [Concomitant]
  10. ESTRADERM [Concomitant]

REACTIONS (9)
  - RASH GENERALISED [None]
  - CATARACT OPERATION [None]
  - ARTHRALGIA [None]
  - VISION BLURRED [None]
  - LEUKOPENIA [None]
  - RED BLOOD CELL COUNT DECREASED [None]
  - PRURITUS [None]
  - DEPRESSION [None]
  - AMNESIA [None]
